FAERS Safety Report 8202201-3 (Version None)
Quarter: 2012Q1

REPORT INFORMATION
  Report Type: 
  Country: None (occurrence: None)
  Receive Date: 20120312
  Receipt Date: 20120301
  Transmission Date: 20120608
  Serious: Yes (Hospitalization, Other)
  Sender: FDA-Public Use
  Company Number: IE-ALEXION-A201200411

PATIENT
  Sex: Male

DRUGS (8)
  1. TRAMADOL HCL [Concomitant]
     Dosage: UNK
     Route: 048
  2. SOLIRIS [Suspect]
     Indication: PAROXYSMAL NOCTURNAL HAEMOGLOBINURIA
     Dosage: 900 MG, Q2W
     Route: 042
     Dates: start: 20110406
  3. CALCICHEW-D3 FORTE [Concomitant]
     Dosage: UNK
     Route: 048
  4. CALVEPEN [Concomitant]
     Dosage: UNK
     Route: 048
  5. WARFARIN SODIUM [Concomitant]
     Dosage: UNK
     Route: 048
  6. BISOPINE [Concomitant]
     Dosage: UNK
     Route: 048
  7. VITAMIN B COMPLEX CAP [Concomitant]
     Dosage: UNK
     Route: 048
  8. OMESAR [Concomitant]
     Dosage: UNK
     Route: 048

REACTIONS (3)
  - HAEMOGLOBIN DECREASED [None]
  - MALAISE [None]
  - INFECTION [None]
